FAERS Safety Report 4833207-X (Version None)
Quarter: 2005Q4

REPORT INFORMATION
  Report Type: 
  Country: None (occurrence: None)
  Receive Date: 20051121
  Receipt Date: 20051116
  Transmission Date: 20060501
  Serious: Yes (Other)
  Sender: FDA-Public Use
  Company Number: US-JNJFOC-20051104304

PATIENT
  Weight: 0.7 kg

DRUGS (1)
  1. ORTHO TRI-CYCLEN LO [Suspect]
     Indication: MATERNAL DRUGS AFFECTING FOETUS
     Dates: start: 20040201, end: 20050119

REACTIONS (3)
  - DRUG EXPOSURE DURING PREGNANCY [None]
  - LIFE SUPPORT [None]
  - PREMATURE BABY [None]
